FAERS Safety Report 9142977 (Version 2)
Quarter: 2013Q2

REPORT INFORMATION
  Report Type: Spontaneous
  Country: US (occurrence: US)
  Receive Date: 20130306
  Receipt Date: 20130503
  Transmission Date: 20140414
  Serious: No
  Sender: FDA-Public Use
  Company Number: US-PFIZER INC-2013077445

PATIENT
  Age: 91 Year
  Sex: Male
  Weight: 83.45 kg

DRUGS (1)
  1. ADVIL PM [Suspect]
     Indication: INSOMNIA
     Dosage: UNK, DAILY
     Route: 048
     Dates: start: 20130215, end: 2013

REACTIONS (5)
  - Poor quality drug administered [Unknown]
  - Dysphagia [Unknown]
  - Throat irritation [Unknown]
  - Product packaging quantity issue [Unknown]
  - Capsule physical issue [Unknown]
